FAERS Safety Report 7005068-4 (Version None)
Quarter: 2010Q3

REPORT INFORMATION
  Report Type: 
  Country: None (occurrence: None)
  Receive Date: 20100921
  Receipt Date: 20100909
  Transmission Date: 20110219
  Serious: Yes (Hospitalization, Other)
  Sender: FDA-Public Use
  Company Number: PHHY2010BR33055

PATIENT
  Sex: Female

DRUGS (8)
  1. DIOVAN [Suspect]
     Indication: HYPERTENSION
     Dosage: 1 TABLET (80 MG) DIALY
     Route: 048
  2. PURAN T4 [Concomitant]
     Indication: HYPOTHYROIDISM
     Dosage: 1 TABLET DAILY
     Route: 048
  3. METOPROLOL SUCCINATE [Concomitant]
     Indication: CARDIAC DISORDER
     Dosage: 1 TABLET DAILY
     Route: 048
     Dates: start: 20100419
  4. CLOPIDOGREL [Concomitant]
     Indication: CARDIAC DISORDER
     Dosage: 1 TABLET DAILY
     Route: 048
     Dates: start: 20100419
  5. ASPIRIN [Concomitant]
     Indication: CARDIAC DISORDER
     Dosage: 1 TABLET DAILY
     Route: 048
     Dates: start: 20100419
  6. LIPITOR [Concomitant]
     Indication: CARDIAC DISORDER
     Dosage: 1 TABLET DAILY
     Route: 048
     Dates: start: 20100419
  7. RIVOTRIL [Concomitant]
     Indication: CARDIAC DISORDER
     Dosage: 1 TABLET DAILY
     Route: 048
     Dates: start: 20100419
  8. PANTOPRAZOLE [Concomitant]
     Indication: ABDOMINAL DISCOMFORT
     Dosage: 1 TABLET DAILY
     Route: 048
     Dates: start: 20100419

REACTIONS (5)
  - CAROTID ARTERY OCCLUSION [None]
  - CHEST PAIN [None]
  - CORONARY ARTERY OCCLUSION [None]
  - CORONARY REVASCULARISATION [None]
  - VASCULAR GRAFT [None]
